FAERS Safety Report 11706860 (Version 2)
Quarter: 2015Q4

REPORT INFORMATION
  Report Type: Report from Study
  Country: UM (occurrence: US)
  Receive Date: 20151106
  Receipt Date: 20151130
  Transmission Date: 20160304
  Serious: Yes (Death)
  Sender: FDA-Public Use
  Company Number: UM-ACTELION-A-NJ2015-126594

PATIENT
  Age: 67 Year
  Sex: Male

DRUGS (1)
  1. TRACLEER [Suspect]
     Active Substance: BOSENTAN
     Indication: PULMONARY HYPERTENSION
     Dosage: 125 MG, UNK
     Route: 048
     Dates: start: 20150720, end: 20151022

REACTIONS (1)
  - Renal cell carcinoma [Fatal]

NARRATIVE: CASE EVENT DATE: 20151022
